FAERS Safety Report 4601979-5 (Version None)
Quarter: 2005Q1

REPORT INFORMATION
  Report Type: 
  Country: None (occurrence: None)
  Receive Date: 20050131
  Receipt Date: 20041111
  Transmission Date: 20050727
  Serious: Yes (Hospitalization)
  Sender: FDA-Public Use
  Company Number: 140691USA

PATIENT
  Age: 47 Year
  Sex: Male
  Weight: 86.1834 kg

DRUGS (6)
  1. GABAPENTIN [Suspect]
     Indication: PAIN IN EXTREMITY
     Dosage: 300 MILLIGRAM TID ORAL
     Route: 048
     Dates: start: 20041025, end: 20041025
  2. GABAPENTIN [Suspect]
     Indication: SURGERY
     Dosage: 300 MILLIGRAM TID ORAL
     Route: 048
     Dates: start: 20041025, end: 20041025
  3. OXYCODONE HCL [Concomitant]
  4. LEXAPRO [Concomitant]
  5. ZANAFLEX [Concomitant]
  6. OXYCONTIN [Concomitant]

REACTIONS (8)
  - ABNORMAL BEHAVIOUR [None]
  - AGITATION [None]
  - AKINESIA [None]
  - APHASIA [None]
  - DYSARTHRIA [None]
  - DYSTONIA [None]
  - FALL [None]
  - FATIGUE [None]
